FAERS Safety Report 23184194 (Version 1)
Quarter: 2023Q4

REPORT INFORMATION
  Report Type: Other
  Country: None (occurrence: JP)
  Receive Date: 20231115
  Receipt Date: 20231115
  Transmission Date: 20240110
  Serious: Yes (Congenital Anomaly, Other)
  Sender: FDA-Public Use
  Company Number: JP-Avondale Pharmaceuticals, LLC-2148291

PATIENT
  Sex: Female
  Weight: 2.736 kg

DRUGS (2)
  1. POTASSIUM IODIDE [Suspect]
     Active Substance: POTASSIUM IODIDE
     Indication: Product used for unknown indication
     Route: 064
  2. PROPYLTHIOURACIL [Suspect]
     Active Substance: PROPYLTHIOURACIL
     Route: 064

REACTIONS (6)
  - Foetal exposure during pregnancy [Unknown]
  - Goitre [Recovered/Resolved]
  - Hypothyroidism [Recovered/Resolved]
  - Goitre congenital [Recovered/Resolved]
  - Thyroiditis [Recovered/Resolved]
  - Hyperthyroidism [Recovered/Resolved]
